FAERS Safety Report 25993854 (Version 2)
Quarter: 2025Q4

REPORT INFORMATION
  Report Type: Spontaneous
  Country: CO (occurrence: CO)
  Receive Date: 20251104
  Receipt Date: 20251122
  Transmission Date: 20260118
  Serious: Yes (Other)
  Sender: CELLTRION
  Company Number: CO-CELLTRION INC.-2025CO033165

PATIENT

DRUGS (4)
  1. INFLIXIMAB [Suspect]
     Active Substance: INFLIXIMAB
     Indication: Crohn^s disease
     Dosage: 120MG EVERY 15 DAYS.
     Route: 058
     Dates: start: 20250814
  2. INFLIXIMAB [Suspect]
     Active Substance: INFLIXIMAB
     Dosage: 120MG EVERY 15 DAYS.
     Route: 058
     Dates: start: 20250828
  3. INFLIXIMAB [Suspect]
     Active Substance: INFLIXIMAB
     Dosage: 120MG EVERY 15 DAYS.
     Route: 058
     Dates: start: 20251023
  4. INFLIXIMAB [Suspect]
     Active Substance: INFLIXIMAB
     Indication: Crohn^s disease
     Dosage: 400 MG OF INFLIXIMAB IV EVERY 4 WEEKS
     Route: 042

REACTIONS (5)
  - Diarrhoea haemorrhagic [Not Recovered/Not Resolved]
  - Pain [Not Recovered/Not Resolved]
  - Fistula [Not Recovered/Not Resolved]
  - Diverticulitis [Not Recovered/Not Resolved]
  - Intentional product use issue [Unknown]

NARRATIVE: CASE EVENT DATE: 20250903
